FAERS Safety Report 5353463-1 (Version None)
Quarter: 2007Q2

REPORT INFORMATION
  Report Type: 
  Country: None (occurrence: None)
  Receive Date: 20070612
  Receipt Date: 20070604
  Transmission Date: 20071010
  Serious: Yes (Other)
  Sender: FDA-Public Use
  Company Number: HQWYE106914JUL04

PATIENT
  Sex: Female
  Weight: 64.47 kg

DRUGS (3)
  1. PREMPRO [Suspect]
     Dosage: UNKNOWN
     Dates: start: 19970101, end: 19980101
  2. PROVERA [Suspect]
     Dosage: UNKNOWN
     Dates: start: 19950101, end: 19970101
  3. ESTRACE [Suspect]
     Dosage: UNKNOWN
     Dates: start: 19950101, end: 19970101

REACTIONS (1)
  - INFLAMMATORY CARCINOMA OF THE BREAST [None]
